FAERS Safety Report 25620700 (Version 1)
Quarter: 2025Q3

REPORT INFORMATION
  Report Type: Spontaneous
  Country: JP (occurrence: JP)
  Receive Date: 20250730
  Receipt Date: 20250730
  Transmission Date: 20251020
  Serious: Yes (Other)
  Sender: TEVA
  Company Number: JP-WARNER CHILCOTT-2014-003247

PATIENT
  Age: 54 Year
  Sex: Female

DRUGS (12)
  1. ACTONEL [Suspect]
     Active Substance: RISEDRONATE SODIUM
     Dosage: DOSAGE TEXT: 17.5 MG ONCE WEEKLY
     Route: 048
     Dates: end: 20121003
  2. REBAMIPIDE [Concomitant]
     Active Substance: REBAMIPIDE
  3. TRANSAMIN [Concomitant]
     Active Substance: TRANEXAMIC ACID
  4. VOLTAREN [Concomitant]
     Active Substance: DICLOFENAC SODIUM
  5. RHEUMATREX [Concomitant]
     Active Substance: METHOTREXATE SODIUM
     Dates: end: 20120917
  6. EVISTA [Concomitant]
     Active Substance: RALOXIFENE HYDROCHLORIDE
  7. CHOLECALCIFEROL [Concomitant]
     Active Substance: CHOLECALCIFEROL
     Route: 065
  8. BENZBROMARONE [Concomitant]
     Active Substance: BENZBROMARONE
  9. LANSOPRAZOLE [Concomitant]
     Active Substance: LANSOPRAZOLE
  10. PROGRAF [Concomitant]
     Active Substance: TACROLIMUS
  11. CELECOXIB [Concomitant]
     Active Substance: CELECOXIB
  12. MAGNESIUM OXIDE [Concomitant]
     Active Substance: MAGNESIUM OXIDE

REACTIONS (1)
  - Lymphoproliferative disorder [Recovered/Resolved]

NARRATIVE: CASE EVENT DATE: 20120917
